FAERS Safety Report 8555972-0 (Version None)
Quarter: 2012Q3

REPORT INFORMATION
  Report Type: 
  Country: None (occurrence: None)
  Receive Date: 20120801
  Receipt Date: 20101109
  Transmission Date: 20120928
  Serious: Yes (Hospitalization, Other)
  Sender: FDA-Public Use
  Company Number: US-BAYER-201026767NA

PATIENT
  Age: 29 Year
  Sex: Female
  Weight: 80 kg

DRUGS (18)
  1. PROPOXYPHENE NAPSYLATE W/ ACETAMINOPHEN [Concomitant]
     Indication: PAIN
     Route: 048
     Dates: start: 20080611
  2. OXYCODONE HCL [Concomitant]
     Indication: PAIN
     Route: 048
     Dates: start: 20080611
  3. YASMIN [Suspect]
     Indication: PRODUCT USED FOR UNKNOWN INDICATION
     Route: 048
  4. ALBUTEROL [Concomitant]
     Indication: ASTHMA
     Route: 055
  5. PHENTERMINE [Concomitant]
     Indication: INCREASED APPETITE
     Route: 048
     Dates: start: 20080103
  6. ADIPEX-P [Concomitant]
  7. DARVOCET [Concomitant]
  8. YAZ [Suspect]
     Indication: ORAL CONTRACEPTION
     Route: 048
     Dates: start: 20071001, end: 20100101
  9. IBUPROFEN [Concomitant]
     Indication: PAIN
     Route: 048
     Dates: start: 20080305
  10. CEFACLOR [Concomitant]
     Indication: ANTIBIOTIC THERAPY
     Route: 048
     Dates: start: 20081104
  11. HYDROCODONE BITARTRATE AND ACETAMINOPHEN [Concomitant]
     Indication: PAIN
     Route: 048
     Dates: start: 20080303
  12. DIAZEPAM [Concomitant]
     Indication: VARICOSE VEIN
     Route: 048
     Dates: start: 20080529
  13. DIAZEPAM [Concomitant]
     Route: 048
     Dates: start: 20080721
  14. PHENTERMINE [Concomitant]
     Route: 048
     Dates: start: 20080204
  15. LEVAQUIN [Concomitant]
     Indication: ANTIBIOTIC THERAPY
     Route: 048
     Dates: start: 20080611
  16. AZITHROMYCIN [Concomitant]
     Dosage: UNK
     Dates: start: 20081028
  17. AZITHROMYCIN [Concomitant]
     Indication: ANTIBIOTIC THERAPY
     Dosage: 6
     Dates: start: 20080209
  18. CIPROFLAXACIN [Concomitant]
     Indication: ANTIBIOTIC THERAPY
     Route: 048
     Dates: start: 20080305

REACTIONS (8)
  - FAT INTOLERANCE [None]
  - ABDOMINAL PAIN [None]
  - BILIARY DYSKINESIA [None]
  - ABDOMINAL PAIN UPPER [None]
  - CHOLECYSTITIS CHRONIC [None]
  - NAUSEA [None]
  - VOMITING [None]
  - BACK PAIN [None]
